FAERS Safety Report 23873284 (Version 1)
Quarter: 2024Q2

REPORT INFORMATION
  Report Type: Spontaneous
  Country: US (occurrence: US)
  Receive Date: 20240520
  Receipt Date: 20240520
  Transmission Date: 20240716
  Serious: No
  Sender: FDA-Public Use
  Company Number: US-009507513-2405USA004708

PATIENT
  Age: 83 Year
  Sex: Female

DRUGS (8)
  1. JANUVIA [Suspect]
     Active Substance: SITAGLIPTIN PHOSPHATE
     Indication: Type 2 diabetes mellitus
     Dosage: 50 MILLIGRAM, QD
     Route: 048
     Dates: start: 20240411
  2. METFORMIN [Concomitant]
     Active Substance: METFORMIN HYDROCHLORIDE
     Indication: Type 2 diabetes mellitus
     Dosage: UNK
     Dates: end: 202404
  3. VALSARTAN [Concomitant]
     Active Substance: VALSARTAN
  4. CARVEDILOL [Concomitant]
     Active Substance: CARVEDILOL
  5. CILOSTAZOL [Concomitant]
     Active Substance: CILOSTAZOL
  6. XARELTO [Concomitant]
     Active Substance: RIVAROXABAN
  7. PRAVASTATIN [Concomitant]
     Active Substance: PRAVASTATIN
  8. OXYBUTYNIN [Concomitant]
     Active Substance: OXYBUTYNIN\OXYBUTYNIN CHLORIDE

REACTIONS (2)
  - Dysphagia [Unknown]
  - Dyspepsia [Unknown]

NARRATIVE: CASE EVENT DATE: 20240501
